FAERS Safety Report 6120523-7 (Version None)
Quarter: 2009Q1

REPORT INFORMATION
  Report Type: 
  Country: None (occurrence: None)
  Receive Date: 20090316
  Receipt Date: 20090316
  Transmission Date: 20090719
  Serious: Yes (Death)
  Sender: FDA-Public Use
  Company Number: None

PATIENT
  Sex: Male
  Weight: 95.2554 kg

DRUGS (1)
  1. NEURONTIN [Suspect]
     Indication: DEPRESSION
     Dosage: 100 MG DAILY
     Dates: start: 20030101, end: 20050101

REACTIONS (1)
  - CARDIAC ARREST [None]
